FAERS Safety Report 6577017-4 (Version None)
Quarter: 2010Q1

REPORT INFORMATION
  Report Type: 
  Country: None (occurrence: None)
  Receive Date: 20100210
  Receipt Date: 20100203
  Transmission Date: 20100710
  Serious: Yes (Hospitalization, Other)
  Sender: FDA-Public Use
  Company Number: FR-B.I. PHARMACEUTICALS,INC./RIDGEFIELD-2010-FF-00111FF

PATIENT
  Sex: Male

DRUGS (10)
  1. MOBIC [Suspect]
     Route: 048
     Dates: start: 20090810, end: 20090820
  2. KARDEGIC [Concomitant]
     Dosage: 75 MG
     Route: 048
     Dates: end: 20090822
  3. PRAXILENE [Concomitant]
     Dosage: 200 MG
  4. OMEPRAZOLE [Concomitant]
     Dosage: 20 MG
  5. TANGANIL [Concomitant]
     Dosage: 500 MG
  6. ALFUZOSINE [Concomitant]
     Dosage: 10 MG
  7. PRAVASTATIN [Concomitant]
     Dosage: 10 MG
  8. BISOPROLOL [Concomitant]
     Dosage: 5 MG
  9. ART 50 [Concomitant]
  10. VOLTAREN [Concomitant]

REACTIONS (17)
  - AUTOIMMUNE PANCYTOPENIA [None]
  - BICYTOPENIA [None]
  - BLADDER CANCER [None]
  - BLOOD BLISTER [None]
  - FEBRILE BONE MARROW APLASIA [None]
  - H1N1 INFLUENZA [None]
  - HAEMATURIA [None]
  - HYPOALBUMINAEMIA [None]
  - INFECTION [None]
  - LUNG DISORDER [None]
  - LYMPHADENOPATHY MEDIASTINAL [None]
  - NEUTROPENIA [None]
  - ORAL FUNGAL INFECTION [None]
  - PURPURA [None]
  - RED BLOOD CELL ABNORMALITY [None]
  - RENAL FAILURE [None]
  - THROMBOCYTOPENIA [None]
